FAERS Safety Report 6299920-5 (Version None)
Quarter: 2009Q3

REPORT INFORMATION
  Report Type: 
  Country: None (occurrence: None)
  Receive Date: 20090806
  Receipt Date: 20090803
  Transmission Date: 20100115
  Serious: Yes (Life-Threatening, Hospitalization, Disabling, Other)
  Sender: FDA-Public Use
  Company Number: PHHY2009NZ28685

PATIENT
  Sex: Female

DRUGS (10)
  1. CLOZARIL [Suspect]
     Indication: SCHIZOPHRENIA
     Dosage: UNK
     Route: 048
     Dates: start: 20010607
  2. CLOZARIL [Suspect]
     Dosage: UNK
     Route: 048
     Dates: end: 20090318
  3. QUETIAPINE FUMARATE [Concomitant]
     Dosage: 100 MG, TID
     Dates: start: 20070208
  4. VALPROATE SODIUM [Concomitant]
     Dosage: 1.5 G, BID
     Dates: start: 20060206
  5. LEVOTHYROXINE SODIUM [Concomitant]
     Dosage: 50 UG MANE
     Dates: start: 20030721
  6. CASTOR OIL [Concomitant]
     Dosage: UNK
     Dates: start: 20090121
  7. FERO-GRADUMET [Concomitant]
     Dosage: 325 MG, MANE
     Dates: start: 20080701
  8. SYMBICORT [Concomitant]
     Dosage: UNK
     Dates: start: 20030721
  9. COMBIVENT [Concomitant]
     Dosage: UNK
     Dates: start: 20030320
  10. MONOFEME [Concomitant]
     Dosage: UNK
     Dates: start: 20040806

REACTIONS (12)
  - AGITATION [None]
  - APPENDICECTOMY [None]
  - CONSTIPATION [None]
  - COUGH [None]
  - LAPAROTOMY [None]
  - LIVER FUNCTION TEST ABNORMAL [None]
  - LOSS OF CONSCIOUSNESS [None]
  - MALAISE [None]
  - PLEURAL EFFUSION [None]
  - SEPTIC SHOCK [None]
  - SYSTEMIC INFLAMMATORY RESPONSE SYNDROME [None]
  - WHITE BLOOD CELL COUNT INCREASED [None]
